FAERS Safety Report 22202600 (Version 1)
Quarter: 2023Q2

REPORT INFORMATION
  Report Type: Spontaneous
  Country: DE (occurrence: DE)
  Receive Date: 20230412
  Receipt Date: 20230412
  Transmission Date: 20230721
  Serious: Yes (Other)
  Sender: FDA-Public Use
  Company Number: DE-JNJFOC-20190741502

PATIENT
  Sex: Male
  Weight: 72 kg

DRUGS (1)
  1. IMODIUM [Suspect]
     Active Substance: LOPERAMIDE HYDROCHLORIDE
     Indication: Diarrhoea
     Dosage: 2 TABLETS (ONLY ONCE, INITIAL DOSAGE WAS ENOUGH) ABOUT 3-4 TIMES A WEEK
     Route: 048
     Dates: end: 20190718

REACTIONS (2)
  - Liver function test increased [Unknown]
  - Food poisoning [Unknown]
